FAERS Safety Report 6445608-7 (Version None)
Quarter: 2009Q4

REPORT INFORMATION
  Report Type: 
  Country: None (occurrence: None)
  Receive Date: 20091118
  Receipt Date: 20091118
  Transmission Date: 20100525
  Serious: Yes (Life-Threatening, Hospitalization)
  Sender: FDA-Public Use
  Company Number: None

PATIENT
  Sex: Female

DRUGS (1)
  1. LISINOPRIL [Suspect]
     Indication: BLOOD PRESSURE
     Dosage: 10 MG 1 X DAILY
     Dates: start: 20090901, end: 20091010

REACTIONS (3)
  - LIP SWELLING [None]
  - NO THERAPEUTIC RESPONSE [None]
  - PARAESTHESIA ORAL [None]
